FAERS Safety Report 5643334-5 (Version None)
Quarter: 2008Q1

REPORT INFORMATION
  Report Type: 
  Country: None (occurrence: None)
  Receive Date: 20080228
  Receipt Date: 20080218
  Transmission Date: 20080703
  Serious: Yes (Hospitalization)
  Sender: FDA-Public Use
  Company Number: MX-JNJFOC-20080203428

PATIENT
  Age: 64 Year
  Sex: Female

DRUGS (1)
  1. TRADOL RETARD [Suspect]
     Indication: NEUROPATHY PERIPHERAL
     Route: 048

REACTIONS (3)
  - CONFUSIONAL STATE [None]
  - HALLUCINATION [None]
  - POST HERPETIC NEURALGIA [None]
